FAERS Safety Report 8984874 (Version 3)
Quarter: 2013Q1

REPORT INFORMATION
  Report Type: Spontaneous
  Country: US (occurrence: US)
  Receive Date: 20121225
  Receipt Date: 20130309
  Transmission Date: 20140127
  Serious: Yes (Other)
  Sender: FDA-Public Use
  Company Number: US-AMGEN-USASP2012082109

PATIENT
  Age: 78 Year
  Sex: Male
  Weight: 90.25 kg

DRUGS (16)
  1. XGEVA [Suspect]
     Indication: PRODUCT USED FOR UNKNOWN INDICATION
     Dosage: 120 MG, QMO
     Route: 058
     Dates: start: 20110401, end: 20110809
  2. AMOXICILLIN [Concomitant]
     Dosage: 500 MG, TID
     Route: 048
  3. AUGMENTIN                          /00756801/ [Concomitant]
     Dosage: 875-125 MG, BID
     Route: 048
     Dates: start: 20120518
  4. BICALUTAMIDE [Concomitant]
     Dosage: 50 MG, QD
     Dates: start: 20111227
  5. CITRACAL                           /00751520/ [Concomitant]
  6. DIGOXIN [Concomitant]
     Dosage: 0.125 MG, QD
     Route: 048
  7. FLOMAX                             /00889901/ [Concomitant]
     Dosage: 0.4 MG, QD
     Route: 048
  8. FUROSEMIDE [Concomitant]
     Dosage: UNK UNK, BID
  9. LEVEMIR [Concomitant]
     Dosage: 100 UNK, QHS
     Route: 058
  10. LYCOPENE [Concomitant]
     Dosage: UNK UNK, QD
  11. OCUVITE                            /01053801/ [Concomitant]
     Dosage: UNK UNK, QD
  12. OMEPRAZOLE                         /00661202/ [Concomitant]
     Dosage: 20 MG, QD
  13. PLAVIX [Concomitant]
     Dosage: 75 MG, QD
     Route: 048
  14. RENAGEL                            /01459901/ [Concomitant]
     Dosage: 800 MG, QD
     Route: 048
  15. SIMVASTATIN [Concomitant]
     Dosage: 40 MG, QD
     Route: 048
  16. ZEMPLAR [Concomitant]
     Dosage: 5 MUG/ML, BID
     Route: 042

REACTIONS (1)
  - Osteonecrosis of jaw [Recovered/Resolved]
